FAERS Safety Report 26110616 (Version 3)
Quarter: 2025Q4

REPORT INFORMATION
  Report Type: Spontaneous
  Country: US (occurrence: US)
  Receive Date: 20251202
  Receipt Date: 20251229
  Transmission Date: 20260117
  Serious: Yes (Hospitalization, Other)
  Sender: CATALYST PHARMA
  Company Number: US-CATALYST PHARMACEUTICALS-US-CATA-25-01838

PATIENT
  Sex: Male
  Weight: 66.989 kg

DRUGS (9)
  1. AGAMREE [Suspect]
     Active Substance: VAMOROLONE
     Indication: Duchenne muscular dystrophy
     Dosage: 3.5 ML
     Route: 048
     Dates: start: 2022
  2. AGAMREE [Suspect]
     Active Substance: VAMOROLONE
     Dosage: 7.5 ML ONCE DAILY
     Route: 048
     Dates: start: 20240920
  3. AGAMREE [Suspect]
     Active Substance: VAMOROLONE
     Dosage: 3.5 ML ONCE DAILY
     Route: 048
     Dates: start: 20250605
  4. CALCIUM PLUS D SUPPLEMENT [Concomitant]
     Indication: Osteoporosis
     Dosage: 1 TABLET DAILY
     Route: 065
  5. DIGESTIVE ADVANTAGE KIDS TABLET [Concomitant]
     Indication: Gastrointestinal disorder prophylaxis
     Dosage: 2 TABLETS DAILY
     Route: 065
  6. VITAMIN E [Concomitant]
     Active Substance: .ALPHA.-TOCOPHEROL
     Indication: Hypovitaminosis
     Dosage: 180 MG DAILY
     Route: 065
  7. LISINOPRIL [Concomitant]
     Active Substance: LISINOPRIL
     Indication: Cardiovascular event prophylaxis
     Dosage: 2.5 MG DAILY
     Route: 065
  8. VITAMIN D [Concomitant]
     Active Substance: VITAMIN D NOS
     Indication: Osteoporosis
     Dosage: 1.25 MG ONCE A WEEK
     Route: 065
  9. VITAMIN E [Concomitant]
     Active Substance: .ALPHA.-TOCOPHEROL
     Indication: Pruritus
     Dosage: 1 APPLICATION AS NEEDED
     Route: 065

REACTIONS (3)
  - Wisdom teeth removal [Not Recovered/Not Resolved]
  - Anaesthetic complication [Not Recovered/Not Resolved]
  - Tracheostomy [Unknown]

NARRATIVE: CASE EVENT DATE: 20250101
